FAERS Safety Report 6469805-X (Version None)
Quarter: 2009Q4

REPORT INFORMATION
  Report Type: 
  Country: None (occurrence: None)
  Receive Date: 20091203
  Receipt Date: 20081105
  Transmission Date: 20100525
  Serious: Yes (Hospitalization)
  Sender: FDA-Public Use
  Company Number: FR-ELI_LILLY_AND_COMPANY-FR200711005534

PATIENT
  Age: 76 Year
  Sex: Female
  Weight: 76 kg

DRUGS (8)
  1. FORTEO [Suspect]
     Indication: OSTEOPOROSIS
     Dosage: 20 UG, DAILY (1/D)
     Route: 058
     Dates: start: 20071009
  2. ASPEGIC 1000 [Concomitant]
     Dosage: 1000 MG, DAILY (1/D)
     Route: 048
  3. PLAVIX [Concomitant]
     Dosage: UNK, UNKNOWN
     Route: 048
  4. TENORMIN [Concomitant]
     Dosage: UNK, UNKNOWN
     Route: 048
  5. TAHOR [Concomitant]
     Dosage: 10 MG, DAILY (1/D)
     Route: 048
  6. MOPRAL [Concomitant]
     Dosage: 20 MG, DAILY (1/D)
     Route: 048
  7. CACIT D3 [Concomitant]
     Dosage: 500 MG, DAILY (1/D)
     Route: 048
  8. FORLAX [Concomitant]
     Dosage: UNK, UNKNOWN
     Route: 048

REACTIONS (2)
  - DYSPNOEA [None]
  - MYOCARDIAL INFARCTION [None]
